FAERS Safety Report 20715635 (Version 1)
Quarter: 2022Q2

REPORT INFORMATION
  Report Type: Spontaneous
  Country: PR (occurrence: PR)
  Receive Date: 20220415
  Receipt Date: 20220415
  Transmission Date: 20220721
  Serious: No
  Sender: FDA-Public Use
  Company Number: PR-PFIZER INC-202101206495

PATIENT
  Age: 69 Year
  Sex: Female

DRUGS (1)
  1. XELJANZ XR [Suspect]
     Active Substance: TOFACITINIB CITRATE
     Dosage: 11 MG, 1X/DAY
     Route: 048
     Dates: start: 20210823

REACTIONS (3)
  - Drug ineffective [Unknown]
  - Pain [Not Recovered/Not Resolved]
  - Nausea [Not Recovered/Not Resolved]
